FAERS Safety Report 5771885-1 (Version None)
Quarter: 2008Q2

REPORT INFORMATION
  Report Type: 
  Country: None (occurrence: None)
  Receive Date: 20080613
  Receipt Date: 20080604
  Transmission Date: 20081010
  Serious: Yes (Hospitalization)
  Sender: FDA-Public Use
  Company Number: B0524386A

PATIENT
  Sex: Female

DRUGS (1)
  1. AVANDIA [Suspect]
     Route: 065

REACTIONS (4)
  - CARDIAC FAILURE [None]
  - FLUID RETENTION [None]
  - OEDEMA PERIPHERAL [None]
  - PULMONARY OEDEMA [None]
